FAERS Safety Report 10230935 (Version 1)
Quarter: 2014Q2

REPORT INFORMATION
  Report Type: Spontaneous
  Country: US (occurrence: None)
  Receive Date: 20140610
  Receipt Date: 20140610
  Transmission Date: 20141212
  Serious: Yes (Other)
  Sender: FDA-Public Use
  Company Number: None

PATIENT
  Age: 48 Year
  Sex: Female
  Weight: 92.08 kg

DRUGS (6)
  1. HCG INJECTIONS [Suspect]
     Indication: WEIGHT DECREASED
     Dosage: GIVEN INTO/UNDER THE SKIN
     Dates: start: 20140526, end: 20140608
  2. DIOVAN [Concomitant]
  3. HCTZ [Concomitant]
  4. SEASONIQUE [Concomitant]
  5. CHROMIUM [Concomitant]
  6. 81 MG ASPIRIN [Concomitant]

REACTIONS (3)
  - Alopecia [None]
  - Menorrhagia [None]
  - Presyncope [None]
